FAERS Safety Report 25545061 (Version 1)
Quarter: 2025Q3

REPORT INFORMATION
  Report Type: Spontaneous
  Country: JP (occurrence: JP)
  Receive Date: 20250711
  Receipt Date: 20250711
  Transmission Date: 20251021
  Serious: Yes (Hospitalization, Other)
  Sender: ELI LILLY AND COMPANY
  Company Number: JP-ELI_LILLY_AND_COMPANY-JP202507008557

PATIENT
  Age: 69 Year
  Sex: Female
  Weight: 35 kg

DRUGS (5)
  1. GEMCITABINE HYDROCHLORIDE [Suspect]
     Active Substance: GEMCITABINE HYDROCHLORIDE
     Indication: Pancreatic carcinoma
     Route: 041
  2. GEMCITABINE HYDROCHLORIDE [Suspect]
     Active Substance: GEMCITABINE HYDROCHLORIDE
     Route: 041
  3. GEMCITABINE HYDROCHLORIDE [Suspect]
     Active Substance: GEMCITABINE HYDROCHLORIDE
     Route: 041
  4. PACLITAXEL [Concomitant]
     Active Substance: PACLITAXEL
     Indication: Pancreatic carcinoma
  5. PACLITAXEL [Concomitant]
     Active Substance: PACLITAXEL

REACTIONS (6)
  - General physical health deterioration [Unknown]
  - Decreased appetite [Unknown]
  - Neutropenia [Unknown]
  - Diarrhoea [Unknown]
  - Fatigue [Unknown]
  - Oedema [Unknown]
